FAERS Safety Report 6616940-9 (Version None)
Quarter: 2010Q1

REPORT INFORMATION
  Report Type: 
  Country: None (occurrence: None)
  Receive Date: 20100301
  Receipt Date: 20100215
  Transmission Date: 20100710
  Serious: Yes (Other)
  Sender: FDA-Public Use
  Company Number: 2010-00228

PATIENT
  Age: 74 Year
  Sex: Male
  Weight: 77 kg

DRUGS (9)
  1. RAMIPRIL [Suspect]
     Indication: DRUG USE FOR UNKNOWN INDICATION
     Dosage: 1.25 MG (1 IN 1 D), ORAL
     Route: 048
     Dates: start: 20071128, end: 20100203
  2. ARANSEP (DARBEPOETIN ALFA) [Suspect]
     Indication: RENAL FAILURE CHRONIC
  3. FLUOROURACIL [Concomitant]
  4. ATORVASTATIN CALCIUM [Concomitant]
  5. CYCLOPHOSPHAMIDE [Concomitant]
  6. DEXAMETHASONE [Concomitant]
  7. RANITIDINE [Concomitant]
  8. THALIDOMIDE [Concomitant]
  9. WARFARIN SODIUM [Concomitant]

REACTIONS (5)
  - BLOOD CREATININE INCREASED [None]
  - BLOOD PRODUCT TRANSFUSION DEPENDENT [None]
  - ERYTHROPOIESIS ABNORMAL [None]
  - PANCYTOPENIA [None]
  - SERUM FERRITIN INCREASED [None]
